FAERS Safety Report 7407064-1 (Version None)
Quarter: 2011Q2

REPORT INFORMATION
  Report Type: 
  Country: None (occurrence: None)
  Receive Date: 20110411
  Receipt Date: 20110331
  Transmission Date: 20111010
  Serious: Yes (Other)
  Sender: FDA-Public Use
  Company Number: US-ROCHE-769279

PATIENT
  Sex: Female
  Weight: 69.9 kg

DRUGS (5)
  1. METHOTREXATE [Concomitant]
     Indication: RHEUMATOID ARTHRITIS
  2. PREDNISONE [Concomitant]
     Indication: RHEUMATOID ARTHRITIS
     Dosage: DOSE: 10-20 MG ONCE DAILY
  3. INDOCIN [Concomitant]
  4. ACTEMRA [Suspect]
     Indication: RHEUMATOID ARTHRITIS
     Dosage: FORM: INFUSION.
     Route: 042
     Dates: start: 20110321
  5. PRISTIQ [Concomitant]

REACTIONS (9)
  - FLUID RETENTION [None]
  - ABDOMINAL PAIN UPPER [None]
  - DISORIENTATION [None]
  - DYSPNOEA [None]
  - DIZZINESS [None]
  - PALPITATIONS [None]
  - ANXIETY [None]
  - DIARRHOEA [None]
  - ERUCTATION [None]
